FAERS Safety Report 9866143 (Version 1)
Quarter: 2014Q1

REPORT INFORMATION
  Report Type: Spontaneous
  Country: US (occurrence: US)
  Receive Date: 20140203
  Receipt Date: 20140203
  Transmission Date: 20141002
  Serious: No
  Sender: FDA-Public Use
  Company Number: US-ALLERGAN-1318175US

PATIENT
  Age: 68 Year
  Sex: Female

DRUGS (7)
  1. RESTASIS [Suspect]
     Indication: DRY EYE
     Dosage: UNK
     Dates: start: 20131115
  2. REFRESH OPTIVE [Concomitant]
     Indication: DRY EYE
     Dosage: UNK, PRN
     Route: 047
  3. BLINK AND CLEAN [Concomitant]
     Indication: EYE LUBRICATION THERAPY
     Dosage: UNK, PRN
     Route: 047
  4. WALGREENS LUBRICATING EYE DROPS [Concomitant]
     Indication: DRY EYE
     Dosage: UNK
     Route: 047
  5. CLEAR EYES REDNESS RELIEF [Concomitant]
     Indication: PRODUCT USED FOR UNKNOWN INDICATION
     Dosage: UNK
     Route: 047
  6. BACTRIM [Concomitant]
     Indication: LOCALISED INFECTION
     Dosage: UNK
     Dates: end: 20131113
  7. CEFTIN                             /00454603/ [Concomitant]
     Indication: LOCALISED INFECTION
     Dosage: UNK
     Dates: end: 20131113

REACTIONS (4)
  - Multiple use of single-use product [Unknown]
  - Ocular hyperaemia [Not Recovered/Not Resolved]
  - Eye pruritus [Not Recovered/Not Resolved]
  - Superficial injury of eye [Recovered/Resolved]
